FAERS Safety Report 16187113 (Version 1)
Quarter: 2019Q2

REPORT INFORMATION
  Report Type: Spontaneous
  Country: FR (occurrence: FR)
  Receive Date: 20190411
  Receipt Date: 20190411
  Transmission Date: 20190711
  Serious: Yes (Death)
  Sender: FDA-Public Use
  Company Number: FR-009507513-1904FRA004524

PATIENT
  Age: 65 Year
  Sex: Female
  Weight: 92 kg

DRUGS (11)
  1. CEFTRIAXONE. [Suspect]
     Active Substance: CEFTRIAXONE
     Indication: UROSEPSIS
     Dosage: 1 GRAM, QD
     Route: 042
     Dates: start: 20190227, end: 20190227
  2. CHIBRO-CADRON [Suspect]
     Active Substance: DEXAMETHASONE\NEOMYCIN SULFATE
     Indication: PRODUCT USED FOR UNKNOWN INDICATION
     Dosage: 1 GOUTTE PAR OEIL
     Route: 047
     Dates: start: 20190225, end: 20190227
  3. CILASTATIN SODIUM (+) IMIPENEM [Suspect]
     Active Substance: CILASTATIN SODIUM\IMIPENEM
     Indication: SEPTIC SHOCK
     Dosage: UNK
     Route: 042
     Dates: start: 20190302, end: 20190308
  4. PROPOFOL LIPURO [Suspect]
     Active Substance: PROPOFOL
     Indication: INDUCTION OF ANAESTHESIA
     Dosage: UNK
     Route: 042
     Dates: start: 20190228, end: 20190228
  5. VORICONAZOLE. [Suspect]
     Active Substance: VORICONAZOLE
     Indication: ANTIBIOTIC PROPHYLAXIS
     Dosage: 720 MILLIGRAM, QD
     Route: 042
     Dates: start: 20190226, end: 20190306
  6. EVOLTRA [Suspect]
     Active Substance: CLOFARABINE
     Indication: BONE MARROW TRANSPLANT
     Dosage: 60 MILLIGRAM, QD
     Route: 042
     Dates: start: 20190225, end: 20190301
  7. VANCOMYCINE SANDOZ [Suspect]
     Active Substance: VANCOMYCIN
     Indication: PRODUCT USED FOR UNKNOWN INDICATION
     Dosage: UNK
     Route: 042
     Dates: start: 20190302, end: 20190303
  8. CEFTAZIDIME. [Suspect]
     Active Substance: CEFTAZIDIME
     Indication: SEPTIC SHOCK
     Dosage: UNK
     Route: 042
     Dates: start: 20190301, end: 20190302
  9. EMEND [Suspect]
     Active Substance: APREPITANT
     Indication: BONE MARROW TRANSPLANT
     Dosage: 125MG J1 PUIS 80MG; STRENGTH: 125 MG, 80 MG
     Route: 048
     Dates: start: 20190225, end: 20190227
  10. CYTARABINE. [Suspect]
     Active Substance: CYTARABINE
     Indication: SURGICAL PRECONDITIONING
     Dosage: 2000 MILLIGRAM, QD
     Route: 042
     Dates: start: 20190225, end: 20190301
  11. ONDANSETRON [Suspect]
     Active Substance: ONDANSETRON
     Indication: ANTIEMETIC SUPPORTIVE CARE
     Dosage: 2 DOSAGE FORM, QD
     Route: 042
     Dates: start: 20190226, end: 20190227

REACTIONS (1)
  - Toxic epidermal necrolysis [Fatal]

NARRATIVE: CASE EVENT DATE: 20190303
